FAERS Safety Report 4725723-6 (Version None)
Quarter: 2005Q3

REPORT INFORMATION
  Report Type: 
  Country: None (occurrence: None)
  Receive Date: 20050722
  Receipt Date: 20050722
  Transmission Date: 20060218
  Serious: Yes (Life-Threatening)
  Sender: FDA-Public Use
  Company Number: None

PATIENT
  Age: 28 Year
  Sex: Male

DRUGS (1)
  1. ENALAPRIL [Suspect]
     Dosage: 0.25 MG  INTRAVENOUS
     Route: 042

REACTIONS (2)
  - FACE OEDEMA [None]
  - SWOLLEN TONGUE [None]
